FAERS Safety Report 10667309 (Version 1)
Quarter: 2014Q4

REPORT INFORMATION
  Report Type: Spontaneous
  Country: US (occurrence: None)
  Receive Date: 20141218
  Receipt Date: 20141218
  Transmission Date: 20150529
  Serious: Yes (Other)
  Sender: FDA-Public Use
  Company Number: INT_00537_2014

PATIENT
  Age: 55 Year
  Sex: Male

DRUGS (2)
  1. CISPLATIN. [Suspect]
     Active Substance: CISPLATIN
     Indication: SALIVARY GLAND CANCER
     Dosage: (DF)
  2. IMRT [Suspect]
     Active Substance: RADIATION THERAPY
     Indication: SALIVARY GLAND CANCER
     Dosage: (DF)

REACTIONS (3)
  - Fibrosis [None]
  - Dry mouth [None]
  - Osteoradionecrosis [None]
